FAERS Safety Report 9238987 (Version 1)
Quarter: 2013Q2

REPORT INFORMATION
  Report Type: Spontaneous
  Country: US (occurrence: US)
  Receive Date: 20130418
  Receipt Date: 20130418
  Transmission Date: 20140414
  Serious: Yes (Other)
  Sender: FDA-Public Use
  Company Number: US-BAXTER-2013BAX013954

PATIENT
  Age: 32 Year
  Sex: Male

DRUGS (9)
  1. NEXTERONE_AMIODARONE, HYDROCHLORIDE 50.00 MG/ML_SOLUTION FOR INFUSION_ [Suspect]
     Indication: TACHYCARDIA
     Route: 042
  2. NEXTERONE_AMIODARONE, HYDROCHLORIDE 50.00 MG/ML_SOLUTION FOR INFUSION_ [Suspect]
  3. NEXTERONE_AMIODARONE, HYDROCHLORIDE 50.00 MG/ML_SOLUTION FOR INFUSION_ [Suspect]
     Route: 048
  4. NEXTERONE_AMIODARONE, HYDROCHLORIDE 50.00 MG/ML_SOLUTION FOR INFUSION_ [Suspect]
     Route: 048
  5. DIGOXIN [Concomitant]
     Indication: PRODUCT USED FOR UNKNOWN INDICATION
  6. SOTALOL [Concomitant]
     Indication: PRODUCT USED FOR UNKNOWN INDICATION
  7. FUROSEMIDE [Concomitant]
     Indication: PRODUCT USED FOR UNKNOWN INDICATION
  8. LISINOPRIL [Concomitant]
     Indication: PRODUCT USED FOR UNKNOWN INDICATION
  9. COUMADIN [Concomitant]
     Indication: PRODUCT USED FOR UNKNOWN INDICATION

REACTIONS (2)
  - Muscle spasms [Recovered/Resolved]
  - Blood creatine phosphokinase increased [None]
